FAERS Safety Report 5887089-8 (Version None)
Quarter: 2008Q3

REPORT INFORMATION
  Report Type: 
  Country: None (occurrence: None)
  Receive Date: 20080917
  Receipt Date: 20080905
  Transmission Date: 20090109
  Serious: Yes (Other)
  Sender: FDA-Public Use
  Company Number: US-PFIZER INC-2008060177

PATIENT
  Sex: Female
  Weight: 77.1 kg

DRUGS (10)
  1. CHANTIX [Suspect]
     Indication: SMOKING CESSATION THERAPY
     Dates: start: 20080725
  2. ZETIA [Concomitant]
  3. LIPITOR [Concomitant]
  4. WARFARIN SODIUM [Concomitant]
  5. TOPROL-XL [Concomitant]
  6. PROZAC [Concomitant]
  7. LANOXIN [Concomitant]
  8. SOMA [Concomitant]
  9. LORTAB [Concomitant]
  10. VITAMIN TAB [Concomitant]

REACTIONS (4)
  - CIRCUMSTANCE OR INFORMATION CAPABLE OF LEADING TO MEDICATION ERROR [None]
  - DIZZINESS [None]
  - HOMICIDAL IDEATION [None]
  - LOWER LIMB FRACTURE [None]
